FAERS Safety Report 5362201-8 (Version None)
Quarter: 2007Q2

REPORT INFORMATION
  Report Type: 
  Country: None (occurrence: None)
  Receive Date: 20070618
  Receipt Date: 20070618
  Transmission Date: 20071010
  Serious: No
  Sender: FDA-Public Use
  Company Number: None

PATIENT

DRUGS (2)
  1. RIBAVIRIN [Suspect]
  2. INTRON A [Suspect]
     Dosage: INJECTABLE

REACTIONS (7)
  - BLOOD CREATININE INCREASED [None]
  - BLOOD POTASSIUM INCREASED [None]
  - BLOOD UREA INCREASED [None]
  - CONTRAINDICATION TO MEDICAL TREATMENT [None]
  - MEDICATION ERROR [None]
  - NEUTROPHIL COUNT DECREASED [None]
  - PANCYTOPENIA [None]
